FAERS Safety Report 21556345 (Version 1)
Quarter: 2022Q4

REPORT INFORMATION
  Report Type: Spontaneous
  Country: US (occurrence: US)
  Receive Date: 20221104
  Receipt Date: 20221104
  Transmission Date: 20230113
  Serious: Yes (Other)
  Sender: FDA-Public Use
  Company Number: US-009507513-2211USA001061

PATIENT
  Age: 57 Year
  Sex: Female

DRUGS (2)
  1. KEYTRUDA [Suspect]
     Active Substance: PEMBROLIZUMAB
     Dosage: UNK
     Route: 042
  2. LENVATINIB MESYLATE [Suspect]
     Active Substance: LENVATINIB MESYLATE
     Indication: Renal cancer metastatic
     Dosage: 18 MILLIGRAM, DAILY
     Route: 048
     Dates: start: 20221005

REACTIONS (2)
  - Malignant neoplasm progression [Unknown]
  - Anaemia [Recovered/Resolved]
